FAERS Safety Report 18595087 (Version 1)
Quarter: 2020Q4

REPORT INFORMATION
  Report Type: Spontaneous
  Country: US (occurrence: US)
  Receive Date: 20201209
  Receipt Date: 20201209
  Transmission Date: 20210114
  Serious: Yes (Other)
  Sender: FDA-Public Use
  Company Number: None

PATIENT
  Age: 37 Year
  Sex: Male
  Weight: 125 kg

DRUGS (1)
  1. BAMLANIVIMAB 700 MG IN SODIUM CHLORIDE (NS) 0.9 % 200 ML IVPB [Suspect]
     Active Substance: BAMLANIVIMAB
     Indication: COVID-19
     Dosage: ?          OTHER FREQUENCY:ONCE;??
     Route: 041
     Dates: start: 20201208, end: 20201208

REACTIONS (3)
  - Anxiety [None]
  - Chest pain [None]
  - Infusion related reaction [None]

NARRATIVE: CASE EVENT DATE: 20201208
